FAERS Safety Report 16057831 (Version 1)
Quarter: 2019Q1

REPORT INFORMATION
  Report Type: Spontaneous
  Country: FR (occurrence: FR)
  Receive Date: 20190311
  Receipt Date: 20190311
  Transmission Date: 20190418
  Serious: Yes (Other)
  Sender: FDA-Public Use
  Company Number: FR-TEVA-2019-FR-1023111

PATIENT
  Age: 57 Year
  Sex: Female
  Weight: 57 kg

DRUGS (2)
  1. ESTREVA [Suspect]
     Active Substance: ESTRADIOL
     Indication: CONTRACEPTION
     Dosage: 1 DOSAGE FORMS DAILY;
     Route: 048
     Dates: start: 1994, end: 2016
  2. ANDROCUR [Suspect]
     Active Substance: CYPROTERONE ACETATE
     Indication: ACNE
     Dosage: 1 DOSAGE FORMS DAILY;
     Route: 048
     Dates: start: 1994, end: 2016

REACTIONS (1)
  - Meningioma [Not Recovered/Not Resolved]

NARRATIVE: CASE EVENT DATE: 201507
